FAERS Safety Report 23743227 (Version 2)
Quarter: 2024Q2

REPORT INFORMATION
  Report Type: Spontaneous
  Country: US (occurrence: US)
  Receive Date: 20240415
  Receipt Date: 20240506
  Transmission Date: 20240717
  Serious: Yes (Other)
  Sender: FDA-Public Use
  Company Number: US-BAYER-2024A052045

PATIENT
  Age: 70 Year
  Sex: Male

DRUGS (5)
  1. AFRIN ORIGINAL NASAL [Suspect]
     Active Substance: OXYMETAZOLINE HYDROCHLORIDE
     Indication: Nasal congestion
     Dosage: UNK
     Route: 055
     Dates: start: 20240405, end: 20240405
  2. XARELTO [Concomitant]
     Active Substance: RIVAROXABAN
     Dosage: 20 MG, QD
     Route: 048
  3. LOSARTAN [Concomitant]
     Active Substance: LOSARTAN
     Indication: Prophylaxis
     Dosage: 50 MG, QD
     Route: 048
  4. ATORVASTATIN [Concomitant]
     Active Substance: ATORVASTATIN
     Indication: Prophylaxis
     Dosage: 20 MG, QD
     Route: 048
  5. VITAMIN D3 [Concomitant]
     Active Substance: CHOLECALCIFEROL
     Dosage: 7000 IU, QD
     Route: 048

REACTIONS (3)
  - Atrial fibrillation [None]
  - Atrial fibrillation [Recovering/Resolving]
  - Productive cough [None]

NARRATIVE: CASE EVENT DATE: 20240407
